FAERS Safety Report 5823284-1 (Version None)
Quarter: 2008Q3

REPORT INFORMATION
  Report Type: 
  Country: None (occurrence: None)
  Receive Date: 20080725
  Receipt Date: 20080716
  Transmission Date: 20090109
  Serious: Yes (Other)
  Sender: FDA-Public Use
  Company Number: US-JNJFOC-20080703953

PATIENT
  Sex: Female
  Weight: 53.5 kg

DRUGS (1)
  1. REMICADE [Suspect]
     Indication: CROHN'S DISEASE
     Route: 042

REACTIONS (4)
  - INFUSION RELATED REACTION [None]
  - PHARYNGEAL ERYTHEMA [None]
  - THROAT IRRITATION [None]
  - URTICARIA [None]
